FAERS Safety Report 14037218 (Version 1)
Quarter: 2017Q4

REPORT INFORMATION
  Report Type: Report from Study
  Country: None (occurrence: US)
  Receive Date: 20171004
  Receipt Date: 20171004
  Transmission Date: 20180321
  Serious: Yes (Hospitalization, Other)
  Sender: FDA-Public Use
  Company Number: US-ABBVIE-17K-163-2113485-00

PATIENT
  Sex: Female
  Weight: 69.01 kg

DRUGS (3)
  1. GABAPENTIN. [Concomitant]
     Active Substance: GABAPENTIN
     Indication: RESTLESS LEGS SYNDROME
  2. HUMIRA [Suspect]
     Active Substance: ADALIMUMAB
     Indication: CROHN^S DISEASE
     Route: 058
     Dates: end: 2016
  3. HUMIRA [Suspect]
     Active Substance: ADALIMUMAB
     Route: 058
     Dates: start: 201708

REACTIONS (13)
  - Abdominal distension [Recovering/Resolving]
  - Ear infection [Not Recovered/Not Resolved]
  - Conjunctivitis [Recovered/Resolved]
  - Fatigue [Not Recovered/Not Resolved]
  - Ear haemorrhage [Unknown]
  - Cystitis [Not Recovered/Not Resolved]
  - Immunodeficiency [Not Recovered/Not Resolved]
  - Vision blurred [Not Recovered/Not Resolved]
  - Crohn^s disease [Unknown]
  - Nonspecific reaction [Unknown]
  - Disturbance in attention [Not Recovered/Not Resolved]
  - Bone pain [Not Recovered/Not Resolved]
  - Psoriasis [Not Recovered/Not Resolved]

NARRATIVE: CASE EVENT DATE: 2017
